FAERS Safety Report 5186560-4 (Version None)
Quarter: 2006Q4

REPORT INFORMATION
  Report Type: 
  Country: None (occurrence: None)
  Receive Date: 20061213
  Receipt Date: 20061127
  Transmission Date: 20070319
  Serious: Yes (Other)
  Sender: FDA-Public Use
  Company Number: 2006EU001958

PATIENT
  Age: 36 Year
  Sex: Female
  Weight: 45 kg

DRUGS (4)
  1. VESICARE [Suspect]
     Indication: DRUG USE FOR UNKNOWN INDICATION
     Dosage: ORAL
     Route: 048
  2. FOLIC ACID [Concomitant]
  3. ANTIHYPERTENSIVES [Concomitant]
  4. CELESTONE [Concomitant]

REACTIONS (7)
  - CAESAREAN SECTION [None]
  - DRUG EXPOSURE DURING PREGNANCY [None]
  - FOETAL GROWTH RETARDATION [None]
  - PLACENTAL DISORDER [None]
  - PRE-ECLAMPSIA [None]
  - PREMATURE BABY [None]
  - SCAR [None]
